FAERS Safety Report 8617637-6 (Version None)
Quarter: 2012Q3

REPORT INFORMATION
  Report Type: 
  Country: None (occurrence: None)
  Receive Date: 20120824
  Receipt Date: 20120120
  Transmission Date: 20120928
  Serious: No
  Sender: FDA-Public Use
  Company Number: US-ASTRAZENECA-2011SE75194

PATIENT
  Sex: Female

DRUGS (1)
  1. SYMBICORT [Suspect]
     Indication: CHRONIC OBSTRUCTIVE PULMONARY DISEASE
     Dosage: 160 MCGS BID
     Route: 055

REACTIONS (4)
  - MALAISE [None]
  - EYE DISORDER [None]
  - DYSPHONIA [None]
  - DYSPNOEA EXERTIONAL [None]
